FAERS Safety Report 22616958 (Version 1)
Quarter: 2023Q2

REPORT INFORMATION
  Report Type: Spontaneous
  Country: US (occurrence: US)
  Receive Date: 20230619
  Receipt Date: 20230619
  Transmission Date: 20230721
  Serious: No
  Sender: FDA-Public Use
  Company Number: US-AMGEN-USASP2023104289

PATIENT
  Age: 34 Year
  Sex: Male

DRUGS (2)
  1. VECTIBIX [Suspect]
     Active Substance: PANITUMUMAB
     Indication: Colorectal cancer
     Dosage: 780 MILLIGRAM, STRENGTHS: 400 MG/20 ML VIALS
     Route: 065
     Dates: end: 2023
  2. VECTIBIX [Suspect]
     Active Substance: PANITUMUMAB
     Dosage: 780 MILLIGRAM
     Route: 065
     Dates: start: 20230426

REACTIONS (1)
  - Rash [Unknown]

NARRATIVE: CASE EVENT DATE: 20230411
